FAERS Safety Report 8203916-3 (Version None)
Quarter: 2012Q1

REPORT INFORMATION
  Report Type: 
  Country: None (occurrence: None)
  Receive Date: 20120313
  Receipt Date: 20120305
  Transmission Date: 20120608
  Serious: Yes (Hospitalization)
  Sender: FDA-Public Use
  Company Number: US-BAYER-2011-075209

PATIENT
  Sex: Female
  Weight: 56.689 kg

DRUGS (1)
  1. YASMIN [Suspect]
     Indication: CONTRACEPTION
     Dosage: UNK
     Dates: start: 20050101, end: 20070101

REACTIONS (5)
  - THROMBOSIS [None]
  - CEREBROVASCULAR ACCIDENT [None]
  - INJURY [None]
  - PAIN [None]
  - TRANSIENT ISCHAEMIC ATTACK [None]
